FAERS Safety Report 10747420 (Version 1)
Quarter: 2015Q1

REPORT INFORMATION
  Report Type: Spontaneous
  Country: US (occurrence: None)
  Receive Date: 20150127
  Receipt Date: 20150127
  Transmission Date: 20150721
  Serious: Yes (Other)
  Sender: FDA-Public Use
  Company Number: NGX_00981_2012

PATIENT
  Age: 60 Year
  Sex: Male
  Weight: 82 kg

DRUGS (3)
  1. QUTENZA [Suspect]
     Active Substance: CAPSAICIN
     Indication: COMPLEX REGIONAL PAIN SYNDROME
     Dosage: (1 DF, [PATCH, APPLIED ONCE TO THE FOOT, ANTERIOR ASPECT OF GREAT TOE] TRANSDERMAL]
     Route: 062
     Dates: start: 20120307, end: 20120307
  2. METHADONE [Concomitant]
     Active Substance: METHADONE HYDROCHLORIDE
  3. SLEEPING PILLS [Concomitant]
     Active Substance: UNSPECIFIED INGREDIENT

REACTIONS (7)
  - No therapeutic response [None]
  - Application site erythema [None]
  - Burning sensation [None]
  - Mobility decreased [None]
  - Condition aggravated [None]
  - Pain [None]
  - Application site pain [None]

NARRATIVE: CASE EVENT DATE: 20120307
